FAERS Safety Report 6406345-8 (Version None)
Quarter: 2009Q4

REPORT INFORMATION
  Report Type: 
  Country: None (occurrence: None)
  Receive Date: 20091014
  Receipt Date: 20091006
  Transmission Date: 20100525
  Serious: Yes (Other)
  Sender: FDA-Public Use
  Company Number: 2009SP029112

PATIENT

DRUGS (1)
  1. CLARITIN REDITABS [Suspect]
     Indication: DRUG USE FOR UNKNOWN INDICATION
     Dosage: 10 MG; ONCE
     Dates: start: 20091005

REACTIONS (1)
  - CHROMATURIA [None]
